FAERS Safety Report 11093445 (Version 1)
Quarter: 2015Q2

REPORT INFORMATION
  Report Type: Spontaneous
  Country: FR (occurrence: FR)
  Receive Date: 20150506
  Receipt Date: 20150506
  Transmission Date: 20150821
  Serious: Yes (Death, Life-Threatening)
  Sender: FDA-Public Use
  Company Number: FR-PFIZER INC-2015150161

PATIENT
  Age: 84 Year
  Sex: Male

DRUGS (2)
  1. SALAZOPYRINE [Suspect]
     Active Substance: SULFASALAZINE
     Dosage: UNK
     Route: 048
     Dates: start: 20150415
  2. SALAZOPYRINE [Suspect]
     Active Substance: SULFASALAZINE
     Dosage: 1 G, 3X/DAY
     Route: 048
     Dates: start: 20150427

REACTIONS (3)
  - Dyspnoea [Unknown]
  - Angioedema [Fatal]
  - Asthenia [Unknown]

NARRATIVE: CASE EVENT DATE: 20150427
